FAERS Safety Report 19498658 (Version 2)
Quarter: 2021Q3

REPORT INFORMATION
  Report Type: Spontaneous
  Country: NL (occurrence: RO)
  Receive Date: 20210706
  Receipt Date: 20210719
  Transmission Date: 20211014
  Serious: Yes (Life-Threatening, Hospitalization, Disabling, Other)
  Sender: FDA-Public Use
  Company Number: RO-FRESENIUS KABI-FK202106667

PATIENT
  Age: 55 Year
  Sex: Male

DRUGS (2)
  1. PARACETAMOL (MANUFACTURER UNKNOWN) [Suspect]
     Active Substance: ACETAMINOPHEN
     Indication: COVID-19 PROPHYLAXIS
     Dosage: DAILY FOR ONE YEAR
     Route: 065
  2. METAMIZOLE [Suspect]
     Active Substance: METAMIZOLE
     Indication: COVID-19 PROPHYLAXIS
     Dosage: DAILY FOR ONE YEAR
     Route: 065

REACTIONS (3)
  - Malaise [Not Recovered/Not Resolved]
  - Off label use [Recovered/Resolved]
  - Acute kidney injury [Not Recovered/Not Resolved]
